FAERS Safety Report 11653372 (Version 5)
Quarter: 2015Q4

REPORT INFORMATION
  Report Type: Report from Study
  Country: EC (occurrence: EC)
  Receive Date: 20151022
  Receipt Date: 20151030
  Transmission Date: 20160304
  Serious: Yes (Other)
  Sender: FDA-Public Use
  Company Number: PHHY2014EC157095

PATIENT
  Age: 31 Year
  Sex: Male

DRUGS (2)
  1. SANDOSTATIN LAR DEPOT [Suspect]
     Active Substance: OCTREOTIDE ACETATE
     Dosage: 40 MG, QMO
     Route: 030
     Dates: start: 20150609
  2. SANDOSTATIN LAR DEPOT [Suspect]
     Active Substance: OCTREOTIDE ACETATE
     Indication: ACROMEGALY
     Dosage: 20 MG, QMO
     Route: 030
     Dates: start: 20140911

REACTIONS (8)
  - Libido decreased [Unknown]
  - Judgement impaired [Not Recovered/Not Resolved]
  - Neoplasm [Unknown]
  - Disturbance in attention [Not Recovered/Not Resolved]
  - Headache [Recovered/Resolved]
  - Neoplasm progression [Unknown]
  - Delusion of grandeur [Not Recovered/Not Resolved]
  - Bone disorder [Unknown]

NARRATIVE: CASE EVENT DATE: 201410
